FAERS Safety Report 8991196 (Version 2)
Quarter: 2013Q1

REPORT INFORMATION
  Report Type: Spontaneous
  Country: US (occurrence: US)
  Receive Date: 20121231
  Receipt Date: 20130114
  Transmission Date: 20140127
  Serious: No
  Sender: FDA-Public Use
  Company Number: US-009507513-1212USA008607

PATIENT
  Sex: Female
  Weight: 88.89 kg

DRUGS (2)
  1. NEXPLANON [Suspect]
     Dosage: 1 ROD EVERY THREE YEAR
     Route: 059
     Dates: start: 20121214
  2. NEXPLANON [Suspect]
     Dosage: 1 ROD EVERY THREE YEAR
     Route: 059
     Dates: start: 20121214

REACTIONS (3)
  - Complication of device insertion [Unknown]
  - No adverse event [Unknown]
  - Product quality issue [Unknown]
